FAERS Safety Report 8287033-2 (Version None)
Quarter: 2012Q2

REPORT INFORMATION
  Report Type: 
  Country: None (occurrence: None)
  Receive Date: 20120416
  Receipt Date: 20120413
  Transmission Date: 20120825
  Serious: Yes (Life-Threatening, Hospitalization)
  Sender: FDA-Public Use
  Company Number: FI-B.I. PHARMACEUTICALS,INC./RIDGEFIELD-2012-SW-00299SF

PATIENT
  Sex: Male

DRUGS (6)
  1. RAMIPRIL [Concomitant]
     Dosage: 10 MG
  2. ENOXAPARIN SODIUM [Concomitant]
     Dosage: STRENGTH UNIT: MG/ML.. DAILY DOSE: 20 MGX2
     Route: 058
  3. AZOPT [Concomitant]
     Dosage: STRENGTH UNIT: MG/ML.
  4. XALATAN [Concomitant]
     Dosage: STRENGTH UNIT: MCG/ML.
  5. ATORVASTATIN BLUEFISH [Concomitant]
  6. ASPIRIN AND DIPYRIDAMOLE [Suspect]
     Indication: PLATELET AGGREGATION INHIBITION
     Dosage: 1 ANZ
     Route: 048
     Dates: start: 20101020, end: 20101021

REACTIONS (5)
  - HEART RATE DECREASED [None]
  - CIRCULATORY COLLAPSE [None]
  - NAUSEA [None]
  - OXYGEN SATURATION ABNORMAL [None]
  - BLOOD PRESSURE DECREASED [None]
